FAERS Safety Report 17667607 (Version 1)
Quarter: 2020Q2

REPORT INFORMATION
  Report Type: Spontaneous
  Country: US (occurrence: US)
  Receive Date: 20200414
  Receipt Date: 20200414
  Transmission Date: 20200713
  Serious: No
  Sender: FDA-Public Use
  Company Number: US-ASTELLAS-2019US048689

PATIENT
  Age: 42 Year
  Sex: Male

DRUGS (3)
  1. ASTAGRAF XL [Suspect]
     Active Substance: TACROLIMUS
     Dosage: 1 DF (1 CAPSULES OF 1 MG), ONCE DAILY FOR 10 DAYS
     Route: 065
  2. ASTAGRAF XL [Suspect]
     Active Substance: TACROLIMUS
     Dosage: 2 DF (2 CAPSULES OF 1 MG), ONCE DAILY
     Route: 065
  3. ASTAGRAF XL [Suspect]
     Active Substance: TACROLIMUS
     Indication: PRODUCT USED FOR UNKNOWN INDICATION
     Dosage: 2 DF (2 CAPSULES OF 1 MG), ONCE DAILY
     Route: 065

REACTIONS (2)
  - Product packaging quantity issue [Unknown]
  - Intentional underdose [Unknown]

NARRATIVE: CASE EVENT DATE: 201911
